FAERS Safety Report 15974747 (Version 1)
Quarter: 2019Q1

REPORT INFORMATION
  Report Type: Spontaneous
  Country: JP (occurrence: JP)
  Receive Date: 20190218
  Receipt Date: 20190218
  Transmission Date: 20190418
  Serious: Yes (Death, Life-Threatening, Hospitalization, Other)
  Sender: FDA-Public Use
  Company Number: JP-009507513-1809JPN002777J

PATIENT
  Age: 77 Year
  Sex: Male
  Weight: 46 kg

DRUGS (1)
  1. KEYTRUDA [Suspect]
     Active Substance: PEMBROLIZUMAB
     Indication: NON-SMALL CELL LUNG CANCER
     Dosage: 200 MILLIGRAM, Q3W
     Route: 041
     Dates: start: 20180703, end: 20180906

REACTIONS (9)
  - Rhabdomyolysis [Recovered/Resolved with Sequelae]
  - Fungal infection [Unknown]
  - Shock [Recovered/Resolved with Sequelae]
  - Dermatomyositis [Recovered/Resolved with Sequelae]
  - Psoas abscess [Unknown]
  - Muscular weakness [Not Recovered/Not Resolved]
  - Pseudomembranous colitis [Fatal]
  - Disseminated intravascular coagulation [Unknown]
  - Cytomegalovirus infection [Unknown]

NARRATIVE: CASE EVENT DATE: 20180916
